FAERS Safety Report 10025997 (Version 1)
Quarter: 2014Q1

REPORT INFORMATION
  Report Type: Report from Study
  Country: CA (occurrence: CA)
  Receive Date: 20140320
  Receipt Date: 20140320
  Transmission Date: 20141002
  Serious: Yes (Other)
  Sender: FDA-Public Use
  Company Number: CA-ABBVIE-14P-028-1212545-00

PATIENT
  Sex: Male
  Weight: 107.6 kg

DRUGS (3)
  1. HUMIRA [Suspect]
     Indication: RHEUMATOID ARTHRITIS
     Dosage: LATEST DOSE: 28-FEB-2014
     Route: 058
  2. HUMIRA [Suspect]
     Dosage: LATEST DOSE: 28-FEB-2014
     Route: 058
  3. MEDICATIONS (NOS) [Concomitant]
     Indication: BLOOD CHOLESTEROL INCREASED

REACTIONS (2)
  - Arteriosclerosis [Recovering/Resolving]
  - Gastrointestinal inflammation [Not Recovered/Not Resolved]
